FAERS Safety Report 18606767 (Version 1)
Quarter: 2020Q4

REPORT INFORMATION
  Report Type: Spontaneous
  Country: NL (occurrence: NL)
  Receive Date: 20201211
  Receipt Date: 20201211
  Transmission Date: 20210114
  Serious: Yes (Congenital Anomaly)
  Sender: FDA-Public Use
  Company Number: NVSC2020NL325153

PATIENT
  Sex: Male
  Weight: 7.5 kg

DRUGS (3)
  1. PARACETAMOL [Concomitant]
     Active Substance: ACETAMINOPHEN
     Indication: FOETAL EXPOSURE DURING PREGNANCY
     Dosage: UNK (TABLET, 500 MG (MILLIGRAM))
     Route: 065
  2. MISOPROSTOL. [Concomitant]
     Active Substance: MISOPROSTOL
     Indication: FOETAL EXPOSURE DURING PREGNANCY
     Dosage: UNK (LAGE DOSERING VOOR PRIMEN)
     Route: 065
  3. TEMAZEPAM. [Suspect]
     Active Substance: TEMAZEPAM
     Indication: FOETAL EXPOSURE DURING PREGNANCY
     Dosage: 10 MG (VOOR DE NACHT ZONODIG 1 CAPSULE)
     Route: 064

REACTIONS (2)
  - Congenital tracheomalacia [Unknown]
  - Maternal exposure during pregnancy [Unknown]

NARRATIVE: CASE EVENT DATE: 20200313
